FAERS Safety Report 24981754 (Version 1)
Quarter: 2025Q1

REPORT INFORMATION
  Report Type: Report from Study
  Country: BR (occurrence: BR)
  Receive Date: 20250218
  Receipt Date: 20250218
  Transmission Date: 20250408
  Serious: Yes (Other)
  Sender: ELI LILLY AND COMPANY
  Company Number: BR-Merck Healthcare KGaA-2025007122

PATIENT
  Age: 59 Year
  Sex: Male

DRUGS (1)
  1. CETUXIMAB [Suspect]
     Active Substance: CETUXIMAB
     Indication: Colorectal cancer metastatic
     Dosage: UNK UNK, WEEKLY (1/W)
     Route: 042
     Dates: start: 20240821

REACTIONS (3)
  - Diabetes mellitus [Not Recovered/Not Resolved]
  - Urinary incontinence [Unknown]
  - Weight decreased [Recovered/Resolved]
